FAERS Safety Report 8285776-8 (Version None)
Quarter: 2012Q2

REPORT INFORMATION
  Report Type: 
  Country: None (occurrence: None)
  Receive Date: 20120413
  Receipt Date: 20120403
  Transmission Date: 20120825
  Serious: Yes (Other)
  Sender: FDA-Public Use
  Company Number: US-ELI_LILLY_AND_COMPANY-US201204001722

PATIENT
  Sex: Female

DRUGS (2)
  1. FORTEO [Suspect]
     Indication: OSTEOPOROSIS
     Dosage: 20 UG, QD
     Dates: start: 20120116
  2. EVISTA [Suspect]
     Indication: OSTEOPENIA
     Dosage: 60 MG, QD

REACTIONS (11)
  - LOSS OF CONSCIOUSNESS [None]
  - OESOPHAGEAL DISORDER [None]
  - MALAISE [None]
  - PAIN IN EXTREMITY [None]
  - DISORIENTATION [None]
  - CERVICAL VERTEBRAL FRACTURE [None]
  - NASOPHARYNGITIS [None]
  - DYSPEPSIA [None]
  - COUGH [None]
  - BRONCHIAL DISORDER [None]
  - FALL [None]
